FAERS Safety Report 16850690 (Version 1)
Quarter: 2019Q3

REPORT INFORMATION
  Report Type: Spontaneous
  Country: US (occurrence: US)
  Receive Date: 20190925
  Receipt Date: 20190925
  Transmission Date: 20191005
  Serious: No
  Sender: FDA-Public Use
  Company Number: US-THERAPEUTICSMD-2019TMD02665

PATIENT
  Sex: Female
  Weight: 69.84 kg

DRUGS (5)
  1. IMVEXXY [Suspect]
     Active Substance: ESTRADIOL
     Indication: URINARY TRACT INFECTION
     Dosage: 10 ?G, 2X/WEEK IN THE MORNING ON MONDAY AND TUESDAYS
     Route: 067
  2. UNSPECIFIED ESSENTIAL OILS [Concomitant]
  3. IMVEXXY [Suspect]
     Active Substance: ESTRADIOL
     Indication: VULVOVAGINAL DRYNESS
     Dosage: 10 ?G, 1X/DAY IN THE MORNING
     Route: 067
  4. UNSPECIFIED LOTION [Suspect]
     Active Substance: UNSPECIFIED INGREDIENT
     Dosage: UNK
  5. UNSPECIFIED DAILY VITAMINS [Concomitant]

REACTIONS (3)
  - Headache [Recovered/Resolved]
  - Rash [Recovered/Resolved]
  - Off label use [Recovered/Resolved]
